FAERS Safety Report 21814719 (Version 2)
Quarter: 2023Q1

REPORT INFORMATION
  Report Type: Report from Study
  Country: IN (occurrence: IN)
  Receive Date: 20230104
  Receipt Date: 20230106
  Transmission Date: 20230418
  Serious: Yes (Other)
  Sender: FDA-Public Use
  Company Number: IN-002147023-NVSC2022IN302306

PATIENT
  Age: 42 Year
  Sex: Male

DRUGS (1)
  1. ELTROMBOPAG OLAMINE [Suspect]
     Active Substance: ELTROMBOPAG OLAMINE
     Indication: Aplastic anaemia
     Dosage: 150 MG, QD
     Route: 065
     Dates: start: 20220802

REACTIONS (6)
  - Chronic kidney disease [Unknown]
  - Febrile neutropenia [Unknown]
  - Anal fissure [Unknown]
  - Anal fistula [Unknown]
  - Hypertension [Unknown]
  - Benign prostatic hyperplasia [Unknown]
